FAERS Safety Report 6821180-4 (Version None)
Quarter: 2010Q3

REPORT INFORMATION
  Report Type: 
  Country: None (occurrence: None)
  Receive Date: 20100707
  Receipt Date: 20080212
  Transmission Date: 20110219
  Serious: No
  Sender: FDA-Public Use
  Company Number: US-PFIZER INC-2008014261

PATIENT
  Sex: Female
  Weight: 50 kg

DRUGS (2)
  1. ZOLOFT [Suspect]
     Indication: DEPRESSION
  2. ZOLOFT [Suspect]
     Indication: ANXIETY

REACTIONS (4)
  - BALANCE DISORDER [None]
  - DIZZINESS [None]
  - FEELING ABNORMAL [None]
  - NAUSEA [None]
